FAERS Safety Report 5455518-X (Version None)
Quarter: 2007Q3

REPORT INFORMATION
  Report Type: 
  Country: None (occurrence: None)
  Receive Date: 20070918
  Receipt Date: 20070911
  Transmission Date: 20080115
  Serious: Yes (Other)
  Sender: FDA-Public Use
  Company Number: US-BAYER-200712834BCC

PATIENT
  Age: 3 Year
  Sex: Female

DRUGS (1)
  1. ASPIRIN [Suspect]
     Indication: ACCIDENTAL EXPOSURE
     Dosage: UNIT DOSE: 81 MG
     Route: 048
     Dates: start: 19650101

REACTIONS (12)
  - CARDIOMEGALY [None]
  - COMA [None]
  - CYST [None]
  - GASTRIC DISORDER [None]
  - GASTROINTESTINAL DISORDER [None]
  - GENERAL PHYSICAL HEALTH DETERIORATION [None]
  - HYSTERECTOMY [None]
  - LUNG DISORDER [None]
  - NEOPLASM [None]
  - NEPHROLITHIASIS [None]
  - RENAL CYST [None]
  - WEIGHT DECREASED [None]
